FAERS Safety Report 7466164-0 (Version None)
Quarter: 2011Q2

REPORT INFORMATION
  Report Type: 
  Country: None (occurrence: None)
  Receive Date: 20110509
  Receipt Date: 20110426
  Transmission Date: 20111010
  Serious: Yes (Other)
  Sender: FDA-Public Use
  Company Number: PHHY2011JP36101

PATIENT
  Age: 59 Year
  Sex: Male

DRUGS (4)
  1. SUNITINIB MALATE [Suspect]
     Dates: start: 20090827, end: 20100518
  2. NEXAVAR [Suspect]
     Dates: start: 20080308, end: 20090826
  3. INTERFERON ALFA [Concomitant]
     Dosage: UNK
     Dates: start: 20070801, end: 20080301
  4. AFINITOR [Suspect]
     Dosage: UNK
     Route: 048
     Dates: start: 20100501

REACTIONS (4)
  - WEIGHT DECREASED [None]
  - METASTASES TO HEART [None]
  - DECREASED APPETITE [None]
  - DIARRHOEA [None]
